FAERS Safety Report 7586997-X (Version None)
Quarter: 2011Q3

REPORT INFORMATION
  Report Type: 
  Country: None (occurrence: None)
  Receive Date: 20110701
  Receipt Date: 20110617
  Transmission Date: 20111222
  Serious: Yes (Death)
  Sender: FDA-Public Use
  Company Number: PHHY2011MA54762

PATIENT
  Age: 80 Year
  Sex: Female
  Weight: 96 kg

DRUGS (6)
  1. TRIMETAZIDINE [Concomitant]
     Dosage: UNK
     Dates: start: 20090101
  2. VALSARTAN AND HYDROCHLOROTHIAZIDE [Suspect]
     Indication: HYPERTENSION
     Dosage: 160/12.5 MG, UNK
     Route: 048
     Dates: start: 20090815
  3. SIMVASTATIN [Concomitant]
     Dosage: UNK
     Dates: start: 20071003
  4. ASPIRIN [Concomitant]
     Dosage: UNK
     Dates: start: 20080101
  5. INSULINE [Concomitant]
     Dosage: UNK
     Dates: start: 20010101
  6. DIGOXIN [Concomitant]
     Dosage: UNK
     Dates: start: 20080101

REACTIONS (1)
  - DEATH [None]
